FAERS Safety Report 7311655-6 (Version None)
Quarter: 2011Q1

REPORT INFORMATION
  Report Type: 
  Country: None (occurrence: None)
  Receive Date: 20110224
  Receipt Date: 20110215
  Transmission Date: 20110831
  Serious: Yes (Hospitalization, Other)
  Sender: FDA-Public Use
  Company Number: JP-ASTRAZENECA-2010SE49845

PATIENT
  Age: 26 Year
  Sex: Female
  Weight: 67 kg

DRUGS (8)
  1. COUGH AND COLD PREPARATION [Suspect]
  2. RHYTHMY [Concomitant]
     Indication: INSOMNIA
     Dates: start: 20090525
  3. SERTRALINE HYDROCHLORIDE [Concomitant]
     Indication: BULIMIA NERVOSA
     Dates: start: 20091022
  4. SEROQUEL [Suspect]
     Indication: DEPRESSION
     Route: 048
     Dates: start: 20090525, end: 20101014
  5. SEROQUEL [Suspect]
     Indication: INSOMNIA
     Route: 048
     Dates: start: 20090525, end: 20101014
  6. SERTRALINE HYDROCHLORIDE [Concomitant]
     Indication: DEPRESSION
     Dates: start: 20091022
  7. TETRAMIDE [Concomitant]
     Indication: INSOMNIA
  8. AMOBAN [Concomitant]
     Indication: INSOMNIA

REACTIONS (2)
  - LOSS OF CONSCIOUSNESS [None]
  - GRAND MAL CONVULSION [None]
